FAERS Safety Report 8736829 (Version 6)
Quarter: 2013Q4

REPORT INFORMATION
  Report Type: Spontaneous
  Country: US (occurrence: US)
  Receive Date: 20120822
  Receipt Date: 20131211
  Transmission Date: 20140711
  Serious: Yes (Other)
  Sender: FDA-Public Use
  Company Number: US-ASTRAZENECA-2012SE56835

PATIENT
  Age: 89 Year
  Sex: Female
  Weight: 44.5 kg

DRUGS (8)
  1. SYMBICORT PMDI [Suspect]
     Indication: LUNG INFECTION
     Dosage: 160/4.5 MCG, 2 PUFFS BID
     Route: 055
     Dates: start: 201005
  2. FOSAMAX [Suspect]
     Route: 065
  3. SINGULAIR [Concomitant]
     Dates: start: 201005
  4. BYSTOLIC [Concomitant]
     Indication: HYPERTENSION
     Route: 048
     Dates: start: 2010
  5. AMLODIPINE [Concomitant]
     Indication: HYPERTENSION
     Route: 048
     Dates: start: 2010
  6. TEKTURNA [Concomitant]
     Indication: HYPERTENSION
     Route: 048
     Dates: start: 2010
  7. EVISTA [Concomitant]
     Indication: OSTEOPENIA
     Route: 048
     Dates: start: 2012
  8. FEXOFENADINE [Concomitant]
     Indication: HYPERSENSITIVITY
     Route: 048

REACTIONS (17)
  - Arthralgia [Unknown]
  - Osteonecrosis [Unknown]
  - Bronchial secretion retention [Recovered/Resolved]
  - Asthma [Unknown]
  - Wheezing [Not Recovered/Not Resolved]
  - Speech disorder [Unknown]
  - Fatigue [Unknown]
  - Loose tooth [Unknown]
  - Gait disturbance [Unknown]
  - Body height decreased [Unknown]
  - Bronchitis [Not Recovered/Not Resolved]
  - Osteopenia [Unknown]
  - Cough [Not Recovered/Not Resolved]
  - Hypertension [Unknown]
  - Abnormal behaviour [Unknown]
  - Drug dose omission [Recovered/Resolved]
  - Off label use [Unknown]
